FAERS Safety Report 8127674-6 (Version None)
Quarter: 2012Q1

REPORT INFORMATION
  Report Type: 
  Country: None (occurrence: None)
  Receive Date: 20120210
  Receipt Date: 20120207
  Transmission Date: 20120608
  Serious: Yes (Other)
  Sender: FDA-Public Use
  Company Number: US-PFIZER INC-2010138347

PATIENT
  Sex: Female
  Weight: 98 kg

DRUGS (9)
  1. TRIAMTERENE [Concomitant]
     Dosage: 75 MG, UNK
     Route: 048
  2. LEVOTHYROXINE SODIUM [Concomitant]
     Indication: THYROID DISORDER
     Dosage: 175 UG, 1X/DAY
     Route: 048
  3. POTASSIUM [Concomitant]
     Dosage: 40 MG, UNK
  4. LIPITOR [Suspect]
     Dosage: 40 MG, 1X/DAY
     Route: 048
  5. LIPITOR [Suspect]
     Indication: BLOOD CHOLESTEROL INCREASED
     Dosage: 20 MG, 1X/DAY
     Route: 048
  6. TRIAMTERENE AND HYDROCHLOROTHIAZIDE [Concomitant]
     Dosage: [TRIAMTERINE 75 MG/ HYDROCHOLOROTHIAZIDE 50 MG], 1X/DAY
  7. LIPITOR [Suspect]
     Dosage: 40 MG, UNK
  8. ZOLOFT [Concomitant]
     Indication: DEPRESSION
  9. ZOLOFT [Concomitant]
     Indication: ANXIETY
     Dosage: 100 MG, UNK
     Route: 048

REACTIONS (6)
  - RENAL FAILURE [None]
  - NAUSEA [None]
  - BLOOD PRESSURE INCREASED [None]
  - GALLBLADDER DISORDER [None]
  - CHILLS [None]
  - PRODUCT TASTE ABNORMAL [None]
